FAERS Safety Report 23948767 (Version 1)
Quarter: 2024Q2

REPORT INFORMATION
  Report Type: Report from Study
  Country: IN (occurrence: IN)
  Receive Date: 20240607
  Receipt Date: 20240607
  Transmission Date: 20240716
  Serious: Yes (Other)
  Sender: FDA-Public Use
  Company Number: IN-CIPLA LTD.-2024IN05492

PATIENT

DRUGS (5)
  1. WARFARIN SODIUM [Suspect]
     Active Substance: WARFARIN SODIUM
     Indication: Anticoagulant therapy
     Dosage: DOSE USED 1 (UNITS UNSPECIFIED), FREQUENCY 1 (UNITS UNSPECIFIED) (2 YEARS BACK)
     Route: 048
     Dates: start: 2022
  2. TORSEMIDE [Suspect]
     Active Substance: TORSEMIDE
     Indication: Diuretic therapy
     Dosage: DOSE USED 1 (UNITS UNSPECIFIED), FREQUENCY 1 (UNITS UNSPECIFIED) (2 YEARS BACK)
     Route: 048
     Dates: start: 2022
  3. TORSEMIDE [Suspect]
     Active Substance: TORSEMIDE
     Indication: Cardiac failure
  4. PROLOMET XL [Concomitant]
     Indication: Product used for unknown indication
     Dosage: 50 MILLIGRAM, QD (STARTED 2 YEARS AGO)
     Route: 065
     Dates: start: 2022
  5. DIGOXIN [Concomitant]
     Active Substance: DIGOXIN
     Indication: Product used for unknown indication
     Dosage: 2.5 MILLIGRAM, QD (STARTED 2 YEARS BACK)
     Route: 065
     Dates: start: 2022

REACTIONS (1)
  - Hypertension [Recovered/Resolved]

NARRATIVE: CASE EVENT DATE: 20240501
